FAERS Safety Report 13150199 (Version 1)
Quarter: 2017Q1

REPORT INFORMATION
  Report Type: Report from Study
  Country: US (occurrence: US)
  Receive Date: 20170124
  Receipt Date: 20170124
  Transmission Date: 20170428
  Serious: No
  Sender: FDA-Public Use
  Company Number: US-AMGEN-USASL2017004393

PATIENT
  Age: 64 Year
  Sex: Female

DRUGS (1)
  1. REPATHA [Suspect]
     Active Substance: EVOLOCUMAB
     Indication: BLOOD TRIGLYCERIDES INCREASED
     Dosage: 140 MG, Q2WK
     Route: 065
     Dates: start: 201610

REACTIONS (6)
  - Epistaxis [Unknown]
  - Herpes zoster [Unknown]
  - Ear pain [Unknown]
  - Nasal congestion [Unknown]
  - Decreased immune responsiveness [Unknown]
  - Pyrexia [Unknown]
